FAERS Safety Report 9099750 (Version 1)
Quarter: 2013Q1

REPORT INFORMATION
  Report Type: Report from Study
  Country: US (occurrence: US)
  Receive Date: 20130213
  Receipt Date: 20130213
  Transmission Date: 20140127
  Serious: No
  Sender: FDA-Public Use
  Company Number: US-VERTEX PHARMACEUTICALS INC.-2013-001956

PATIENT
  Sex: Female
  Weight: 124 kg

DRUGS (10)
  1. VX-950 (TELAPREVIR) [Suspect]
     Indication: HEPATITIS C
     Dosage: 750 MG, TID
     Route: 048
     Dates: start: 20121129
  2. RIBASPHERE [Suspect]
     Indication: HEPATITIS C
     Dosage: 600 MG, BID
     Route: 048
     Dates: start: 20121129
  3. PEGASYS [Suspect]
     Indication: HEPATITIS C
     Dosage: 180 ?G, QW
     Route: 058
     Dates: start: 20121129
  4. DIOVAN HCT [Concomitant]
     Dosage: 1 DF, QD
     Route: 048
  5. LANTUS [Concomitant]
     Dosage: 50 UT, QD
     Route: 058
  6. GLIPIZIDE [Concomitant]
     Dosage: 20 MG, BID
  7. LEVOTHYROXINE [Concomitant]
     Dosage: 75 ?G, QD
     Route: 048
  8. CELEXA [Concomitant]
     Dosage: 20 MG, BID
     Route: 048
  9. VITAMIN B12 [Concomitant]
     Dosage: 500 ?G, QD
     Route: 048
  10. NAPROXEN SOD [Concomitant]
     Dosage: 660 MG, QD
     Route: 048

REACTIONS (1)
  - Mental disorder [Unknown]
